FAERS Safety Report 21235072 (Version 1)
Quarter: 2022Q3

REPORT INFORMATION
  Report Type: Spontaneous
  Country: US (occurrence: US)
  Receive Date: 20220821
  Receipt Date: 20220821
  Transmission Date: 20221026
  Serious: Yes (Other)
  Sender: FDA-Public Use
  Company Number: US-SA-SAC20220816001169

PATIENT
  Age: 68 Year
  Sex: Male

DRUGS (1)
  1. ZANTAC [Suspect]
     Active Substance: RANITIDINE HYDROCHLORIDE
     Dosage: 75 MG, QD
     Dates: start: 198801, end: 200201

REACTIONS (2)
  - Bladder cancer [Unknown]
  - Colorectal cancer [Unknown]

NARRATIVE: CASE EVENT DATE: 20140101
